FAERS Safety Report 25854650 (Version 2)
Quarter: 2025Q4

REPORT INFORMATION
  Report Type: Report from Study
  Country: US (occurrence: US)
  Receive Date: 20250927
  Receipt Date: 20251109
  Transmission Date: 20260117
  Serious: Yes (Other)
  Sender: ABBVIE
  Company Number: US-ABBVIE-6476649

PATIENT
  Age: 49 Year
  Sex: Female

DRUGS (2)
  1. SKYRIZI [Suspect]
     Active Substance: RISANKIZUMAB-RZAA
     Indication: Crohn^s disease
     Route: 058
     Dates: start: 20231001
  2. VANCOMYCIN [Concomitant]
     Active Substance: VANCOMYCIN
     Indication: Product used for unknown indication

REACTIONS (8)
  - Gangrene [Recovering/Resolving]
  - Clostridium difficile infection [Not Recovered/Not Resolved]
  - Dyspepsia [Unknown]
  - Crohn^s disease [Not Recovered/Not Resolved]
  - Dyspepsia [Unknown]
  - Pain [Unknown]
  - Animal bite [Recovering/Resolving]
  - Diarrhoea [Unknown]

NARRATIVE: CASE EVENT DATE: 20250101
